FAERS Safety Report 8887735 (Version 1)
Quarter: 2012Q4

REPORT INFORMATION
  Report Type: Spontaneous
  Country: TR (occurrence: None)
  Receive Date: 20121031
  Receipt Date: 20121031
  Transmission Date: 20130627
  Serious: No
  Sender: FDA-Public Use
  Company Number: DSA_60387_2012

PATIENT
  Age: 57 Year
  Sex: Female

DRUGS (4)
  1. FLUOROURACIL (FLUOROURACIL) [Suspect]
     Indication: CHORIOCARCINOMA
     Dosage: (DF)
  2. CISPLATIN [Suspect]
     Indication: GASTRIC CANCER
     Dosage: (DF)
  3. CISPLATIN [Suspect]
     Indication: CHORIOCARCINOMA
     Dosage: (DF)
  4. DOCETAXEL [Concomitant]

REACTIONS (2)
  - Diarrhoea [None]
  - Mucosal inflammation [None]
